FAERS Safety Report 9421034 (Version 2)
Quarter: 2013Q3

REPORT INFORMATION
  Report Type: Spontaneous
  Country: US (occurrence: US)
  Receive Date: 20130725
  Receipt Date: 20130805
  Transmission Date: 20140515
  Serious: Yes (Life-Threatening, Hospitalization, Other)
  Sender: FDA-Public Use
  Company Number: US-PFIZER INC-2013214447

PATIENT
  Age: 53 Year
  Sex: Male

DRUGS (1)
  1. IBUPROFEN [Suspect]
     Indication: ANALGESIC THERAPY
     Dosage: 35,000 MG (70 TABLETS) OVER 4 DAYS
     Route: 048

REACTIONS (29)
  - Sepsis [Recovered/Resolved]
  - Bacteraemia [Recovered/Resolved]
  - Respiratory distress [Recovered/Resolved]
  - Atelectasis [Recovered/Resolved]
  - Meningitis staphylococcal [Recovered/Resolved]
  - Pulmonary vascular disorder [Recovering/Resolving]
  - Respiratory alkalosis [Recovering/Resolving]
  - Pneumonia [Recovering/Resolving]
  - Tachycardia [Recovering/Resolving]
  - Hepatic steatosis [Recovering/Resolving]
  - Ventricular hypokinesia [Recovering/Resolving]
  - Pleural effusion [Recovering/Resolving]
  - Inappropriate antidiuretic hormone secretion [Recovering/Resolving]
  - Pulseless electrical activity [Recovering/Resolving]
  - Hyperhidrosis [Recovering/Resolving]
  - Joint range of motion decreased [Recovering/Resolving]
  - Back pain [Recovering/Resolving]
  - Anxiety [Recovering/Resolving]
  - Ejection fraction decreased [Recovering/Resolving]
  - Sleep apnoea syndrome [Recovering/Resolving]
  - Mental status changes [Recovering/Resolving]
  - Pelvic fluid collection [Recovering/Resolving]
  - Malaise [Recovering/Resolving]
  - Asthenia [Recovering/Resolving]
  - Hypertension [Recovered/Resolved]
  - Body temperature increased [Recovering/Resolving]
  - Renal failure [Recovering/Resolving]
  - Nausea [Recovering/Resolving]
  - Overdose [Unknown]
